FAERS Safety Report 12315183 (Version 1)
Quarter: 2016Q2

REPORT INFORMATION
  Report Type: Spontaneous
  Country: PL (occurrence: PL)
  Receive Date: 20160428
  Receipt Date: 20160428
  Transmission Date: 20160815
  Serious: Yes (Hospitalization)
  Sender: FDA-Public Use
  Company Number: PL-ABBVIE-16P-129-1611783-00

PATIENT
  Age: 64 Year
  Sex: Male

DRUGS (12)
  1. EBIVOL [Concomitant]
     Indication: PRODUCT USED FOR UNKNOWN INDICATION
  2. VIEKIRAX [Suspect]
     Active Substance: OMBITASVIR\PARITAPREVIR\RITONAVIR
     Indication: HEPATITIS C
     Route: 048
  3. WARFARIN [Concomitant]
     Active Substance: WARFARIN
     Indication: PRODUCT USED FOR UNKNOWN INDICATION
     Dosage: SCHEME: 3 MG/DAY DURING TWO DAYS, 1.5 MG/DAY
  4. NOLPAZA [Concomitant]
     Active Substance: PANTOPRAZOLE SODIUM
     Indication: PRODUCT USED FOR UNKNOWN INDICATION
  5. RIBAVIRIN. [Suspect]
     Active Substance: RIBAVIRIN
     Indication: HEPATITIS C
     Dosage: 800 MG DAILY
     Route: 048
  6. RIBAVIRIN. [Suspect]
     Active Substance: RIBAVIRIN
     Dosage: 400 MG DAILY
     Route: 048
  7. WARFARIN [Concomitant]
     Active Substance: WARFARIN
     Dosage: SCHEME: 3 MG AND 4.5 MG EVERY OTHER DAY
  8. WARFARIN [Concomitant]
     Active Substance: WARFARIN
     Dosage: 6 MG DAILY
  9. BISORATIO [Concomitant]
     Indication: PRODUCT USED FOR UNKNOWN INDICATION
  10. EXVIERA [Suspect]
     Active Substance: DASABUVIR
     Indication: HEPATITIS C
     Route: 048
  11. WARFARIN [Concomitant]
     Active Substance: WARFARIN
     Dosage: 6 MG A DAY AND ADDITIONALLY EVERY OTHER DAY 1.5 MG
  12. WARFARIN [Concomitant]
     Active Substance: WARFARIN
     Dosage: 6 MG + 3 X 1.3MG

REACTIONS (8)
  - Alanine aminotransferase increased [Recovered/Resolved]
  - International normalised ratio abnormal [Unknown]
  - Biliary colic [Unknown]
  - C-reactive protein increased [Unknown]
  - Procalcitonin [Unknown]
  - Blood bilirubin increased [Recovered/Resolved]
  - White blood cell count abnormal [Unknown]
  - Asthenia [Unknown]
